FAERS Safety Report 13382203 (Version 6)
Quarter: 2018Q4

REPORT INFORMATION
  Report Type: Report from Study
  Country: CA (occurrence: CA)
  Receive Date: 20170329
  Receipt Date: 20181126
  Transmission Date: 20190204
  Serious: Yes (Other)
  Sender: FDA-Public Use
  Company Number: PHHY2017CA045329

PATIENT
  Sex: Male

DRUGS (5)
  1. COVERSYL [Concomitant]
     Active Substance: PERINDOPRIL
     Indication: PRODUCT USED FOR UNKNOWN INDICATION
     Dosage: 4 MG, QD
     Route: 065
  2. SANDOSTATIN [Suspect]
     Active Substance: OCTREOTIDE ACETATE
     Indication: CARCINOID TUMOUR
     Dosage: ONCE - TEST DOSE
     Route: 058
     Dates: start: 20170120, end: 20170120
  3. SANDOSTATIN LAR DEPOT [Suspect]
     Active Substance: OCTREOTIDE ACETATE
     Indication: CARCINOID TUMOUR
     Dosage: 30 MG, QMO (EVERY 4 WEEKS)
     Route: 030
     Dates: start: 20170125
  4. METOPROLOL. [Suspect]
     Active Substance: METOPROLOL
     Indication: PRODUCT USED FOR UNKNOWN INDICATION
     Dosage: 100 MG, QD (DAILY)
     Route: 048
     Dates: start: 2017
  5. AMLODIPINE [Suspect]
     Active Substance: AMLODIPINE BESYLATE
     Indication: PRODUCT USED FOR UNKNOWN INDICATION
     Dosage: 5 MG, QD
     Route: 065
     Dates: start: 2017

REACTIONS (3)
  - Haematochezia [Recovering/Resolving]
  - Diabetes mellitus [Unknown]
  - Faeces discoloured [Unknown]
